FAERS Safety Report 25350662 (Version 6)
Quarter: 2025Q2

REPORT INFORMATION
  Report Type: Report from Study
  Country: ES (occurrence: ES)
  Receive Date: 20250523
  Receipt Date: 20250627
  Transmission Date: 20250716
  Serious: Yes (Hospitalization)
  Sender: ABBVIE
  Company Number: ES-ABBVIE-6294493

PATIENT
  Age: 62 Year
  Sex: Male

DRUGS (3)
  1. FOSCARBIDOPA\FOSLEVODOPA [Suspect]
     Active Substance: FOSCARBIDOPA\FOSLEVODOPA
     Indication: Parkinson^s disease
     Route: 058
     Dates: start: 20250127
  2. FOSCARBIDOPA\FOSLEVODOPA [Suspect]
     Active Substance: FOSCARBIDOPA\FOSLEVODOPA
     Route: 058
     Dates: start: 202506
  3. HEPARIN [Suspect]
     Active Substance: HEPARIN SODIUM
     Indication: Product used for unknown indication
     Route: 058

REACTIONS (16)
  - Cholangitis acute [Unknown]
  - Akinesia [Recovering/Resolving]
  - Cholecystitis [Recovering/Resolving]
  - Weight decreased [Recovering/Resolving]
  - Hallucination [Unknown]
  - Infusion site haematoma [Recovering/Resolving]
  - Motor dysfunction [Unknown]
  - Anaemia [Recovering/Resolving]
  - Urine abnormality [Unknown]
  - Urine odour abnormal [Unknown]
  - Skin ulcer [Unknown]
  - Dysphonia [Unknown]
  - Bradykinesia [Unknown]
  - Hypokinesia [Unknown]
  - Gait inability [Unknown]
  - C-reactive protein increased [Unknown]

NARRATIVE: CASE EVENT DATE: 20250101
